FAERS Safety Report 6823989-X (Version None)
Quarter: 2010Q3

REPORT INFORMATION
  Report Type: 
  Country: None (occurrence: None)
  Receive Date: 20100708
  Receipt Date: 20100624
  Transmission Date: 20110219
  Serious: Yes (Hospitalization, Other)
  Sender: FDA-Public Use
  Company Number: PHHY2009JP12348

PATIENT
  Sex: Male
  Weight: 56 kg

DRUGS (18)
  1. CERTICAN [Suspect]
     Indication: HEART TRANSPLANT
     Dosage: 1.5 MG/DAY
     Dates: start: 20080724, end: 20080807
  2. CERTICAN [Suspect]
     Dosage: 1.75 MG/DAY
     Dates: start: 20080808, end: 20080829
  3. CERTICAN [Suspect]
     Dosage: 0.5 MG/DAY
     Dates: start: 20080903, end: 20080925
  4. CERTICAN [Suspect]
     Dosage: 1.25 MG/DAY
     Dates: start: 20080926
  5. NEORAL [Suspect]
     Indication: HEART TRANSPLANT
     Dosage: 180 MG/DAY
     Route: 048
     Dates: start: 20040207, end: 20080727
  6. NEORAL [Suspect]
     Dosage: 160 MG/DAY
     Route: 048
     Dates: start: 20080728, end: 20080728
  7. NEORAL [Suspect]
     Dosage: 140 MG/DAY
     Route: 048
     Dates: start: 20080729, end: 20080808
  8. NEORAL [Suspect]
     Dosage: 150 MG, UNK
     Route: 048
     Dates: start: 20080809, end: 20080822
  9. NEORAL [Suspect]
     Dosage: 160 MG, UNK
     Route: 048
     Dates: start: 20080823, end: 20080902
  10. NEORAL [Suspect]
     Dosage: 170 MG, UNK
     Route: 048
     Dates: start: 20080903, end: 20080911
  11. NEORAL [Suspect]
     Dosage: 160 MG, UNK
     Route: 048
     Dates: start: 20080912
  12. CELLCEPT [Suspect]
     Indication: HEART TRANSPLANT
     Dosage: 1.25 G, UNK
     Route: 048
     Dates: start: 20040209, end: 20080723
  13. PREDONINE [Suspect]
     Indication: HEART TRANSPLANT
     Dosage: 30 DF
     Route: 048
     Dates: start: 20040201, end: 20070101
  14. PREDONINE [Suspect]
     Dosage: 30 MG, DAILY
     Route: 048
     Dates: start: 20080826
  15. CARBAMAZEPINE [Concomitant]
  16. NORVASC [Concomitant]
     Indication: HYPERTENSION
     Dosage: 7.5 MG, UNK
     Route: 048
  17. VALGANCICLOVIR HCL [Concomitant]
     Indication: INFECTION PROPHYLAXIS
     Dosage: 900 MG, UNK
     Route: 048
     Dates: start: 20080530, end: 20080901
  18. COTRIM [Concomitant]
     Indication: ANTIFUNGAL PROPHYLAXIS
     Dosage: 1 DF
     Route: 048

REACTIONS (12)
  - CORONARY ARTERY DISEASE [None]
  - CYTOMEGALOVIRUS INFECTION [None]
  - DYSPNOEA [None]
  - ECHOCARDIOGRAM ABNORMAL [None]
  - EPSTEIN-BARR VIRUS INFECTION [None]
  - HEART TRANSPLANT REJECTION [None]
  - IMMUNOSUPPRESSANT DRUG LEVEL DECREASED [None]
  - INTERLEUKIN-2 RECEPTOR INCREASED [None]
  - LEUKOPENIA [None]
  - LYMPHOMA [None]
  - MALAISE [None]
  - SNAKE BITE [None]
